FAERS Safety Report 9177841 (Version 1)
Quarter: 2013Q1

REPORT INFORMATION
  Report Type: Spontaneous
  Country: US (occurrence: US)
  Receive Date: 20130321
  Receipt Date: 20130321
  Transmission Date: 20140127
  Serious: No
  Sender: FDA-Public Use
  Company Number: US-BAYER-2013-035394

PATIENT
  Age: 83 Year
  Sex: Female
  Weight: 90.7 kg

DRUGS (8)
  1. ALEVE [Suspect]
     Indication: ARTHRITIS
     Dosage: 3 DF, BID
     Dates: start: 201301
  2. BAYER ASPIRIN REGIMEN REGULAR 325 MG STRENGTH [Concomitant]
     Indication: ISCHAEMIC HEART DISEASE PROPHYLAXIS
  3. FISH OIL [Concomitant]
  4. NIACIN [Concomitant]
  5. PROPRANOLOL [Concomitant]
  6. FUROSEMIDE [Concomitant]
  7. AMLODIPINE [Concomitant]
  8. LIDODERM [Concomitant]

REACTIONS (1)
  - Incorrect drug administration duration [None]
